FAERS Safety Report 5654492-0 (Version None)
Quarter: 2008Q1

REPORT INFORMATION
  Report Type: 
  Country: None (occurrence: None)
  Receive Date: 20080205
  Receipt Date: 20070607
  Transmission Date: 20080703
  Serious: Yes (Life-Threatening, Hospitalization)
  Sender: FDA-Public Use
  Company Number: MEDI-0005827

PATIENT
  Age: 58 Year
  Sex: Male

DRUGS (2)
  1. ETHYOL [Suspect]
     Indication: TONSIL CANCER
     Dosage: 500 MG, SUBCUTANEOUS
     Route: 058
     Dates: start: 20070524, end: 20070524
  2. ZOFRAN [Concomitant]

REACTIONS (7)
  - BLOOD PRESSURE DECREASED [None]
  - BRADYCARDIA [None]
  - DIZZINESS [None]
  - LOSS OF CONSCIOUSNESS [None]
  - RESPIRATORY ARREST [None]
  - SYNCOPE [None]
  - URINARY INCONTINENCE [None]
